FAERS Safety Report 10098922 (Version 2)
Quarter: 2014Q2

REPORT INFORMATION
  Report Type: Spontaneous
  Country: US (occurrence: US)
  Receive Date: 20140423
  Receipt Date: 20140520
  Transmission Date: 20141212
  Serious: No
  Sender: FDA-Public Use
  Company Number: US-009507513-1404USA009244

PATIENT
  Sex: Female
  Weight: 97.51 kg

DRUGS (1)
  1. IMPLANON [Suspect]
     Indication: CONTRACEPTION
     Dosage: 1 ROD/3 YEARS
     Route: 059
     Dates: start: 20120409, end: 20140414

REACTIONS (3)
  - Device kink [Recovered/Resolved]
  - Device breakage [Recovered/Resolved]
  - No adverse event [Unknown]
